FAERS Safety Report 6915677-6 (Version None)
Quarter: 2010Q3

REPORT INFORMATION
  Report Type: 
  Country: None (occurrence: None)
  Receive Date: 20100810
  Receipt Date: 20100511
  Transmission Date: 20110219
  Serious: Yes (Hospitalization)
  Sender: FDA-Public Use
  Company Number: DE-RANBAXY-2010RR-33780

PATIENT
  Age: 41 Year
  Sex: Female

DRUGS (1)
  1. PARACETAMOL [Suspect]
     Route: 048

REACTIONS (1)
  - OESOPHAGEAL PERFORATION [None]
